FAERS Safety Report 19643023 (Version 1)
Quarter: 2021Q3

REPORT INFORMATION
  Report Type: Spontaneous
  Country: IN (occurrence: IN)
  Receive Date: 20210731
  Receipt Date: 20210731
  Transmission Date: 20211014
  Serious: Yes (Other)
  Sender: FDA-Public Use
  Company Number: NVSC2021IN164939

PATIENT
  Age: 52 Year
  Sex: Male

DRUGS (1)
  1. PAGENAX [Suspect]
     Active Substance: BROLUCIZUMAB
     Indication: CHOROIDAL NEOVASCULARISATION
     Dosage: UNK (MONTHLY/QUARTERLY) (ONLY FIRST PAGENAX WAS GIVEN)
     Route: 031
     Dates: start: 20210602

REACTIONS (4)
  - Retinal occlusive vasculitis [Recovered/Resolved]
  - Vitreous floaters [Recovered/Resolved]
  - Visual impairment [Recovered/Resolved]
  - Product use in unapproved indication [Unknown]

NARRATIVE: CASE EVENT DATE: 20210622
